FAERS Safety Report 8255453-8 (Version None)
Quarter: 2012Q2

REPORT INFORMATION
  Report Type: 
  Country: None (occurrence: None)
  Receive Date: 20120403
  Receipt Date: 20120329
  Transmission Date: 20120825
  Serious: Yes (Other)
  Sender: FDA-Public Use
  Company Number: CA-BAYER-2012-031208

PATIENT

DRUGS (3)
  1. KOGENATE FS [Suspect]
     Indication: HAEMOPHILIA
     Dosage: UNK
     Dates: start: 20120310, end: 20120310
  2. KOGENATE FS [Suspect]
     Dosage: UNK
     Dates: start: 20120313, end: 20120313
  3. KOGENATE FS [Suspect]
     Dosage: UNK
     Dates: start: 20120314, end: 20120314

REACTIONS (2)
  - ANTI FACTOR VIII ANTIBODY POSITIVE [None]
  - HAEMORRHAGE [None]
